FAERS Safety Report 21392202 (Version 1)
Quarter: 2022Q3

REPORT INFORMATION
  Report Type: Spontaneous
  Country: US (occurrence: US)
  Receive Date: 20220929
  Receipt Date: 20220929
  Transmission Date: 20221027
  Serious: Yes (Other)
  Sender: FDA-Public Use
  Company Number: US-JNJFOC-20220944002

PATIENT
  Sex: Female

DRUGS (1)
  1. VISINE RED EYE COMFORT [Suspect]
     Active Substance: TETRAHYDROZOLINE HYDROCHLORIDE
     Indication: Product used for unknown indication
     Dosage: 1 OR 2 DROPS. ONCE.?PRODUCT START DATE: A LONG TIME AGO.
     Route: 047

REACTIONS (1)
  - Eye haemorrhage [Recovered/Resolved]
